FAERS Safety Report 5455391-X (Version None)
Quarter: 2007Q3

REPORT INFORMATION
  Report Type: 
  Country: None (occurrence: None)
  Receive Date: 20070918
  Receipt Date: 20070702
  Transmission Date: 20080115
  Serious: Yes (Other)
  Sender: FDA-Public Use
  Company Number: US-ASTRAZENECA-2006UW21028

PATIENT
  Age: 49 Year
  Sex: Female
  Weight: 102.7 kg

DRUGS (3)
  1. SEROQUEL [Suspect]
     Indication: SLEEP DISORDER
     Route: 048
  2. ABILIFY [Concomitant]
  3. RISPERDAL [Concomitant]

REACTIONS (2)
  - DIABETES MELLITUS [None]
  - TARDIVE DYSKINESIA [None]
